FAERS Safety Report 8778935 (Version 3)
Quarter: 2012Q4

REPORT INFORMATION
  Report Type: 
  Country: US (occurrence: US)
  Receive Date: 20120910
  Receipt Date: 20121203
  Transmission Date: 20130627
  Serious: Yes (Hospitalization, Other)
  Sender: FDA-Public Use
  Company Number: US-ELI_LILLY_AND_COMPANY-US201209000856

PATIENT
  Sex: Female

DRUGS (5)
  1. CYMBALTA [Suspect]
     Indication: DEPRESSION
     Dosage: 1 DF, unknown
     Dates: start: 2009
  2. CYMBALTA [Suspect]
     Dosage: 120 mg, unknown
  3. FORTEO [Suspect]
     Indication: OSTEOPOROSIS
     Dosage: UNK
     Dates: start: 201206
  4. FORTEO [Suspect]
     Dosage: 20 ug, qd
  5. HYDROCODONE [Concomitant]
     Indication: PAIN

REACTIONS (10)
  - Intervertebral disc protrusion [Unknown]
  - Fall [Unknown]
  - Drug ineffective [Unknown]
  - Medication error [Recovered/Resolved]
  - Nausea [Unknown]
  - Dizziness [Recovered/Resolved]
  - Headache [Recovering/Resolving]
  - Pain in extremity [Recovered/Resolved]
  - Back pain [Recovering/Resolving]
  - Memory impairment [Unknown]
